FAERS Safety Report 6405136-1 (Version None)
Quarter: 2009Q4

REPORT INFORMATION
  Report Type: 
  Country: None (occurrence: None)
  Receive Date: 20091019
  Receipt Date: 20091014
  Transmission Date: 20100525
  Serious: Yes (Hospitalization, Disabling)
  Sender: FDA-Public Use
  Company Number: US-ROXANE LABORATORIES, INC.-2009-RO-00980RO

PATIENT
  Sex: Male
  Weight: 68 kg

DRUGS (6)
  1. PREDNISONE TAB [Suspect]
     Indication: DERMATITIS ATOPIC
  2. CRESTOR [Concomitant]
     Indication: BLOOD CHOLESTEROL INCREASED
     Dates: start: 20071001
  3. RECLAST [Concomitant]
     Indication: OSTEOPOROSIS
  4. CELEBREX [Concomitant]
     Indication: OSTEOPOROSIS
     Dates: start: 20091002
  5. AMITRIPTYLINE [Concomitant]
     Indication: OSTEOPOROSIS
     Dates: start: 20090908
  6. NEXIUM [Concomitant]
     Indication: GASTROOESOPHAGEAL REFLUX DISEASE
     Dates: start: 20070601

REACTIONS (10)
  - BACK PAIN [None]
  - BONE DENSITY ABNORMAL [None]
  - DISABILITY [None]
  - FOOT FRACTURE [None]
  - HIP ARTHROPLASTY [None]
  - IMPAIRED WORK ABILITY [None]
  - INTERVERTEBRAL DISC PROTRUSION [None]
  - OSTEOPOROSIS [None]
  - PAIN [None]
  - RIB FRACTURE [None]
